FAERS Safety Report 9014398 (Version 1)
Quarter: 2013Q1

REPORT INFORMATION
  Report Type: Spontaneous
  Country: US (occurrence: US)
  Receive Date: 20130115
  Receipt Date: 20130115
  Transmission Date: 20140127
  Serious: No
  Sender: FDA-Public Use
  Company Number: US-BAYER-2013-005059

PATIENT
  Age: 54 Year
  Sex: Male
  Weight: 98 kg

DRUGS (3)
  1. ALEVE CAPLET/TABLET,MIDOL EXTENDED RELIEF CAPLET [Suspect]
     Indication: HEADACHE
     Dosage: 1 DF, ONCE
     Route: 048
     Dates: start: 20130103, end: 20130103
  2. QUINAPRIL [Concomitant]
  3. SYNTHROID [Concomitant]

REACTIONS (1)
  - Drug ineffective [None]
